FAERS Safety Report 9730035 (Version 3)
Quarter: 2015Q2

REPORT INFORMATION
  Report Type: Spontaneous
  Country: CA (occurrence: CA)
  Receive Date: 20131204
  Receipt Date: 20150618
  Transmission Date: 20150821
  Serious: Yes (Hospitalization, Other)
  Sender: FDA-Public Use
  Company Number: CA-GILEAD-2013-0089177

PATIENT
  Age: 64 Year
  Sex: Female

DRUGS (11)
  1. PREDNISONE. [Concomitant]
     Active Substance: PREDNISONE
  2. VERAPAMIL [Concomitant]
     Active Substance: VERAPAMIL HYDROCHLORIDE
  3. INFLUENZA VIRUS VACCINE POLYVAL. [Suspect]
     Active Substance: INFLUENZA VIRUS VACCINE
     Indication: PROPHYLAXIS
     Route: 065
     Dates: start: 20131106, end: 20131106
  4. IRON [Suspect]
     Active Substance: IRON
     Indication: PRODUCT USED FOR UNKNOWN INDICATION
     Route: 042
  5. AMBRISENTAN [Suspect]
     Active Substance: AMBRISENTAN
     Indication: PULMONARY ARTERIAL HYPERTENSION
     Dosage: 10MG PER DAY
     Route: 048
     Dates: start: 20131009
  6. METFORMIN [Concomitant]
     Active Substance: METFORMIN HYDROCHLORIDE
  7. ALENDRONATE [Concomitant]
     Active Substance: ALENDRONATE SODIUM
  8. IRON [Suspect]
     Active Substance: IRON
     Dosage: ^IRON INFUSIONS^ EVERY 6 TO 8 WEEKS
     Route: 042
  9. WARFARIN [Suspect]
     Active Substance: WARFARIN
     Indication: PRODUCT USED FOR UNKNOWN INDICATION
     Route: 065
     Dates: end: 201402
  10. RABEPRAZOLE [Concomitant]
     Active Substance: RABEPRAZOLE
  11. URSODIOL. [Concomitant]
     Active Substance: URSODIOL

REACTIONS (14)
  - Ulcer haemorrhage [Not Recovered/Not Resolved]
  - Faeces discoloured [Unknown]
  - Pyrexia [Unknown]
  - Swelling [Unknown]
  - Chills [Unknown]
  - Decreased appetite [Unknown]
  - Dizziness [Unknown]
  - Oedema peripheral [Unknown]
  - Blood iron decreased [Unknown]
  - Malaise [Unknown]
  - Gastric cancer [Not Recovered/Not Resolved]
  - Gastric ulcer [Unknown]
  - Oedema peripheral [Unknown]
  - Asthenia [Unknown]

NARRATIVE: CASE EVENT DATE: 201311
